FAERS Safety Report 8104008-4 (Version None)
Quarter: 2012Q1

REPORT INFORMATION
  Report Type: 
  Country: None (occurrence: None)
  Receive Date: 20120201
  Receipt Date: 20120124
  Transmission Date: 20120608
  Serious: No
  Sender: FDA-Public Use
  Company Number: US-BAYER-2012-008796

PATIENT
  Age: 82 Year
  Sex: Male
  Weight: 63 kg

DRUGS (1)
  1. ALEVE (CAPLET) [Suspect]
     Indication: HERPES ZOSTER
     Dosage: 3 DF, UNK
     Route: 048
     Dates: start: 20120101, end: 20120101

REACTIONS (2)
  - NO ADVERSE EVENT [None]
  - PAIN [None]
